FAERS Safety Report 9236264 (Version 1)
Quarter: 2013Q2

REPORT INFORMATION
  Report Type: Spontaneous
  Country: FR (occurrence: FR)
  Receive Date: 20130417
  Receipt Date: 20130417
  Transmission Date: 20140414
  Serious: Yes (Hospitalization)
  Sender: FDA-Public Use
  Company Number: FR-PFIZER INC-2013115514

PATIENT
  Age: 88 Year
  Sex: Female

DRUGS (18)
  1. IBUPROFENE [Suspect]
     Dosage: 200 MG, 2X/DAY
     Route: 048
     Dates: end: 20130325
  2. DEBRIDAT [Suspect]
     Dosage: 100 MG, 3X/DAY
     Route: 048
     Dates: end: 20130325
  3. ATHYMIL [Suspect]
     Dosage: 30 MG, 1X/DAY
     Route: 048
  4. XYZALL [Suspect]
     Dosage: 5 MG, 1X/DAY
     Route: 048
  5. VALIUM [Suspect]
     Dosage: 5 MG, 4X/DAY
     Route: 048
  6. MYOLASTAN [Suspect]
     Dosage: 50 MG, 1X/DAY
     Route: 048
     Dates: end: 20130325
  7. SPASFON [Suspect]
     Dosage: 2 DF, 3X/DAY
     Route: 048
     Dates: end: 20130325
  8. ATACAND [Concomitant]
     Dosage: 8 MG, 1X/DAY
     Route: 048
  9. CORDARONE [Concomitant]
     Dosage: 0.5 DF, 1X/DAY
     Route: 048
  10. DOLIPRANE [Concomitant]
     Dosage: UNK
     Route: 048
     Dates: end: 20130325
  11. INIPOMP [Concomitant]
     Dosage: 40 MG, 1X/DAY
     Route: 048
  12. KARDEGIC [Concomitant]
     Dosage: 75 MG, 1X/DAY
     Route: 048
  13. LEVOTHYROX [Concomitant]
     Dosage: 75 ?G OR 100 ?G ALTERNATE DAY
     Route: 048
  14. TANAKAN [Concomitant]
     Dosage: 1 DF, 3X/DAY
     Route: 048
     Dates: end: 20130325
  15. TRANSIPEG [Concomitant]
     Dosage: 1 DF, 2X/DAY
     Route: 048
  16. ARTELAC [Concomitant]
     Dosage: 1 GTT, 3X/DAY
     Route: 047
  17. LIPOSIC [Concomitant]
     Dosage: 1 GTT, 2X/DAY
     Route: 047
  18. TRAVATAN [Concomitant]
     Dosage: UNK UG/ML, 1X/DAY
     Route: 047

REACTIONS (4)
  - Fall [Recovered/Resolved]
  - Malaise [Recovered/Resolved]
  - Confusional state [Recovered/Resolved]
  - Hyponatraemia [Recovered/Resolved]
